FAERS Safety Report 8421199-6 (Version None)
Quarter: 2012Q2

REPORT INFORMATION
  Report Type: 
  Country: None (occurrence: None)
  Receive Date: 20120604
  Receipt Date: 20120604
  Transmission Date: 20120825
  Serious: No
  Sender: FDA-Public Use
  Company Number: None

PATIENT
  Age: 53 Year
  Sex: Male
  Weight: 115.7 kg

DRUGS (1)
  1. URSODIOL [Suspect]
     Dosage: 300 MG BID PO
     Route: 048
     Dates: start: 20120127, end: 20120207

REACTIONS (9)
  - FEELING ABNORMAL [None]
  - DIARRHOEA [None]
  - FALL [None]
  - TREMOR [None]
  - MUSCLE SPASMS [None]
  - COUGH [None]
  - NAUSEA [None]
  - MUSCLE TWITCHING [None]
  - URTICARIA [None]
